FAERS Safety Report 5397358-6 (Version None)
Quarter: 2007Q3

REPORT INFORMATION
  Report Type: 
  Country: None (occurrence: None)
  Receive Date: 20070726
  Receipt Date: 20070720
  Transmission Date: 20080115
  Serious: Yes (Other)
  Sender: FDA-Public Use
  Company Number: PHEH2006US00813

PATIENT
  Age: 67 Year
  Sex: Female
  Weight: 87.528 kg

DRUGS (2)
  1. ESTRADERM [Suspect]
     Indication: MENOPAUSE
     Dosage: UNK, UNK
     Route: 062
     Dates: start: 19881108, end: 19921005
  2. PROVERA [Suspect]
     Indication: MENOPAUSE
     Dosage: UNK, UNK
     Route: 048
     Dates: start: 19881108, end: 19921005

REACTIONS (43)
  - ANXIETY [None]
  - ARTHRITIS [None]
  - ATRIAL FIBRILLATION [None]
  - BACK DISORDER [None]
  - BEDRIDDEN [None]
  - BIOPSY [None]
  - BIOPSY BREAST ABNORMAL [None]
  - BLOOD CHOLESTEROL INCREASED [None]
  - BREAST CANCER [None]
  - BREAST MASS [None]
  - BREAST RECONSTRUCTION [None]
  - CHEST PAIN [None]
  - DEPRESSION [None]
  - DIABETES MELLITUS [None]
  - DYSPHAGIA [None]
  - ETHMOID SINUS SURGERY [None]
  - GASTROOESOPHAGEAL REFLUX DISEASE [None]
  - HERNIA HIATUS REPAIR [None]
  - HYPERTENSION [None]
  - HYPOTHYROIDISM [None]
  - INFECTION [None]
  - JOINT RANGE OF MOTION DECREASED [None]
  - LYME DISEASE [None]
  - LYMPHOEDEMA [None]
  - MODIFIED RADICAL MASTECTOMY [None]
  - MYRINGOTOMY [None]
  - OBESITY [None]
  - OESTROGEN RECEPTOR ASSAY POSITIVE [None]
  - OSTEOMYELITIS [None]
  - OSTEOPOROSIS [None]
  - PAIN [None]
  - PROGESTERONE RECEPTOR ASSAY POSITIVE [None]
  - REMOVAL OF INERT MATTER FROM SKIN OR SUBCUTANEOUS TISSUE [None]
  - RENAL DISORDER [None]
  - ROAD TRAFFIC ACCIDENT [None]
  - SCAR [None]
  - SINUSITIS [None]
  - SOFT TISSUE DISORDER [None]
  - STENT PLACEMENT [None]
  - TEMPOROMANDIBULAR JOINT SYNDROME [None]
  - URINARY TRACT DISORDER [None]
  - UTERINE DILATION AND CURETTAGE [None]
  - UTERINE DISORDER [None]
